FAERS Safety Report 16101577 (Version 1)
Quarter: 2019Q1

REPORT INFORMATION
  Report Type: Spontaneous
  Country: IT (occurrence: IT)
  Receive Date: 20190321
  Receipt Date: 20190321
  Transmission Date: 20190418
  Serious: Yes (Other)
  Sender: FDA-Public Use
  Company Number: IT-PFIZER INC-2019119389

PATIENT
  Age: 86 Year
  Sex: Female

DRUGS (9)
  1. CARVEDILOL. [Concomitant]
     Active Substance: CARVEDILOL
     Dosage: 25 MG, UNK
     Route: 048
  2. ACARPHAGE [Concomitant]
     Active Substance: ACARBOSE
     Dosage: 50 MG, UNK
     Route: 048
  3. TRIAZOLAM. [Suspect]
     Active Substance: TRIAZOLAM
     Indication: ANXIETY
     Dosage: 125 UG, 1X/DAY
     Route: 048
     Dates: start: 20180101, end: 20180321
  4. ALLOPURINOL. [Concomitant]
     Active Substance: ALLOPURINOL
     Dosage: 100 MG, UNK
     Route: 048
  5. PAROXETINE. [Suspect]
     Active Substance: PAROXETINE
     Indication: CONFUSIONAL STATE
     Dosage: 6 GTT, 1X/DAY
     Route: 048
     Dates: start: 20180319, end: 20180321
  6. FOLIFILL [Concomitant]
     Dosage: UNK
  7. XARELTO [Concomitant]
     Active Substance: RIVAROXABAN
     Dosage: UNK
  8. TRAJENTA [Concomitant]
     Active Substance: LINAGLIPTIN
     Dosage: UNK
  9. LANTUS [Concomitant]
     Active Substance: INSULIN GLARGINE
     Dosage: UNK

REACTIONS (4)
  - Delusion [Recovering/Resolving]
  - Delirium [Recovering/Resolving]
  - Hallucination [Recovering/Resolving]
  - Confusional state [Recovering/Resolving]

NARRATIVE: CASE EVENT DATE: 20180319
